FAERS Safety Report 13208207 (Version 5)
Quarter: 2019Q4

REPORT INFORMATION
  Report Type: Spontaneous
  Country: US (occurrence: US)
  Receive Date: 20170209
  Receipt Date: 20191011
  Transmission Date: 20200122
  Serious: Yes (Other)
  Sender: FDA-Public Use
  Company Number: US-VIFOR (INTERNATIONAL) INC.-VIT-2017-01081

PATIENT
  Age: 56 Year
  Sex: Female
  Weight: 68.1 kg

DRUGS (21)
  1. CALCIUM ACETATE. [Concomitant]
     Active Substance: CALCIUM ACETATE
  2. HUMALOG MIX [Concomitant]
     Active Substance: INSULIN LISPRO
     Dosage: 50/50
  3. LANTUS [Concomitant]
     Active Substance: INSULIN GLARGINE
  4. SERTRALINE HCL [Concomitant]
     Active Substance: SERTRALINE HYDROCHLORIDE
  5. VELTASSA [Suspect]
     Active Substance: PATIROMER
     Indication: HYPERKALAEMIA
     Route: 048
     Dates: start: 20160708
  6. CRESTOR [Concomitant]
     Active Substance: ROSUVASTATIN CALCIUM
  7. AFEDITAB CR [Concomitant]
     Active Substance: NIFEDIPINE
  8. COENZYME Q10 [Concomitant]
     Active Substance: UBIDECARENONE
  9. LEVEMIR [Concomitant]
     Active Substance: INSULIN DETEMIR
  10. RENVELA [Concomitant]
     Active Substance: SEVELAMER CARBONATE
  11. SENSIPAR [Concomitant]
     Active Substance: CINACALCET HYDROCHLORIDE
  12. VELTASSA [Suspect]
     Active Substance: PATIROMER
     Route: 048
     Dates: start: 20160807
  13. DOCUSATE SODIUM. [Concomitant]
     Active Substance: DOCUSATE SODIUM
  14. NIFEDIPINE. [Concomitant]
     Active Substance: NIFEDIPINE
  15. ATORVASTATIN CALCIUM. [Concomitant]
     Active Substance: ATORVASTATIN CALCIUM
  16. ACETAMINOPHEN. [Concomitant]
     Active Substance: ACETAMINOPHEN
  17. FUROSEMIDE. [Concomitant]
     Active Substance: FUROSEMIDE
  18. TRADJENTA [Concomitant]
     Active Substance: LINAGLIPTIN
  19. CARVEDILOL. [Concomitant]
     Active Substance: CARVEDILOL
  20. RENA-VITE [Concomitant]
     Active Substance: ASCORBIC ACID\BIOTIN\CALCIUM PANTOTHENATE\CYANOCOBALAMIN\FOLIC ACID\NIACINAMIDE\PYRIDOXINE HYDROCHLORIDE\RIBOFLAVIN\THIAMINE MONONITRATE
  21. VITAMIN D [Concomitant]
     Active Substance: VITAMIN D NOS

REACTIONS (4)
  - Dry mouth [Not Recovered/Not Resolved]
  - Thrombosis [Unknown]
  - Spinal operation [Unknown]
  - Dizziness [Unknown]

NARRATIVE: CASE EVENT DATE: 201611
